FAERS Safety Report 6380001-7 (Version None)
Quarter: 2009Q3

REPORT INFORMATION
  Report Type: 
  Country: None (occurrence: None)
  Receive Date: 20090928
  Receipt Date: 20090907
  Transmission Date: 20100115
  Serious: Yes (Hospitalization)
  Sender: FDA-Public Use
  Company Number: GR-GENENTECH-291089

PATIENT
  Age: 47 Year
  Sex: Male

DRUGS (7)
  1. RITUXIMAB [Suspect]
     Indication: NON-HODGKIN'S LYMPHOMA
     Dosage: 375 MG/M2, Q21D
     Route: 065
     Dates: start: 20050201
  2. PEG-INTERFERON ALFA 2A (RO 25-3036) [Suspect]
     Indication: HEPATITIS C
     Dosage: 180 MG, 1/WEEK
     Route: 058
     Dates: start: 20040301, end: 20040901
  3. REBETOL [Suspect]
     Indication: HEPATITIS C
     Dosage: 800 MG, UNK
     Route: 048
     Dates: start: 20040301, end: 20040901
  4. CAELYX [Suspect]
     Indication: HEPATITIS C
     Dosage: 30 MG/M2, Q21D
     Route: 042
     Dates: start: 20050201
  5. CYCLOPHOSPHAMIDE [Suspect]
     Indication: HEPATITIS C
     Dosage: 750 MG/M2, Q21D
     Route: 065
     Dates: start: 20050201
  6. VINCRISTINE [Suspect]
     Indication: HEPATITIS C
     Dosage: 2 MG, UNK
     Route: 065
     Dates: start: 20050201
  7. PREDNISONE TAB [Suspect]
     Indication: HEPATITIS C
     Dosage: 100 MG, UNK
     Route: 065
     Dates: start: 20050201

REACTIONS (3)
  - ACUTE MYOCARDIAL INFARCTION [None]
  - DIFFUSE LARGE B-CELL LYMPHOMA [None]
  - HEPATITIS C [None]
